FAERS Safety Report 5746805-6 (Version None)
Quarter: 2008Q2

REPORT INFORMATION
  Report Type: 
  Country: None (occurrence: None)
  Receive Date: 20080522
  Receipt Date: 20080519
  Transmission Date: 20081010
  Serious: Yes (Other)
  Sender: FDA-Public Use
  Company Number: JP-AVENTIS-200811399JP

PATIENT
  Age: 58 Year
  Sex: Female

DRUGS (8)
  1. AMARYL [Suspect]
     Route: 048
  2. CLARITHROMYCIN [Suspect]
     Dosage: DOSE: 2 TABLETS
     Route: 048
     Dates: start: 20080425
  3. LIPITOR [Concomitant]
  4. MERCAZOLE [Concomitant]
  5. ALLEGRA [Concomitant]
     Dosage: DOSE: 2 TABLETS
  6. SINGULAIR [Concomitant]
     Dosage: DOSE: 1 TABLET
  7. MUCODYNE [Concomitant]
     Dosage: DOSE: 3 TABLETS
  8. LEFTOSE                            /00274101/ [Concomitant]
     Dosage: DOSE: 3 TABLETS

REACTIONS (2)
  - DRUG INTERACTION [None]
  - HYPOGLYCAEMIA [None]
